FAERS Safety Report 23670416 (Version 6)
Quarter: 2024Q4

REPORT INFORMATION
  Report Type: Spontaneous
  Country: US (occurrence: US)
  Receive Date: 20240326
  Receipt Date: 20241219
  Transmission Date: 20250115
  Serious: No
  Sender: AMGEN
  Company Number: US-AMGEN-USASP2024055304

PATIENT
  Age: 73 Year
  Sex: Female

DRUGS (2)
  1. OTEZLA [Suspect]
     Active Substance: APREMILAST
     Indication: Psoriatic arthropathy
     Dosage: 30 MILLIGRAM, BID
     Route: 048
     Dates: start: 202403
  2. OTEZLA [Suspect]
     Active Substance: APREMILAST
     Indication: Arthropathy
     Dosage: 30 MILLIGRAM, BID
     Route: 048
     Dates: start: 20240319

REACTIONS (10)
  - Rash [Unknown]
  - Diarrhoea [Unknown]
  - Infection [Unknown]
  - Fatigue [Unknown]
  - Alopecia [Unknown]
  - Therapy non-responder [Not Recovered/Not Resolved]
  - Pain [Not Recovered/Not Resolved]
  - Arthralgia [Not Recovered/Not Resolved]
  - Upper respiratory tract infection [Not Recovered/Not Resolved]
  - Product dose omission issue [Not Recovered/Not Resolved]

NARRATIVE: CASE EVENT DATE: 20240101
